FAERS Safety Report 5852262-1 (Version None)
Quarter: 2008Q3

REPORT INFORMATION
  Report Type: 
  Country: None (occurrence: None)
  Receive Date: 20080819
  Receipt Date: 20080804
  Transmission Date: 20090109
  Serious: Yes (Death, Hospitalization)
  Sender: FDA-Public Use
  Company Number: KADN20080322

PATIENT
  Age: 84 Year
  Sex: Male

DRUGS (1)
  1. MORPHINE [Suspect]
     Dosage: 180 MG, ORAL
     Route: 048
     Dates: start: 20060101, end: 20060101

REACTIONS (14)
  - AGITATION [None]
  - CARDIAC FAILURE CONGESTIVE [None]
  - CONFUSIONAL STATE [None]
  - DYSARTHRIA [None]
  - LETHARGY [None]
  - MEDICATION ERROR [None]
  - MIOSIS [None]
  - OXYGEN SATURATION DECREASED [None]
  - PNEUMONIA ASPIRATION [None]
  - PULMONARY SEPSIS [None]
  - RESPIRATORY RATE DECREASED [None]
  - SEDATION [None]
  - SOMNOLENCE [None]
  - WRONG DRUG ADMINISTERED [None]
